FAERS Safety Report 4476041-5 (Version None)
Quarter: 2004Q4

REPORT INFORMATION
  Report Type: 
  Country: None (occurrence: None)
  Receive Date: 20041012
  Receipt Date: 20040929
  Transmission Date: 20050328
  Serious: Yes (Hospitalization, Other)
  Sender: FDA-Public Use
  Company Number: 2004056759

PATIENT
  Sex: Female

DRUGS (7)
  1. DILANTIN [Suspect]
     Indication: CONVULSION
     Dosage: 400 MG (100 MG, 4 IN 1 D)
     Dates: start: 20031001
  2. BOTULINUM TOXIN TYPE B (BOTULINUM TOXIN TYPE B) [Suspect]
     Indication: DYSTONIA
     Dosage: 20000 UNITS INTERVAL:  Q3 MONTHS)
     Dates: start: 20011119
  3. SOMA COMPOUND ^HORNER^ (CAFFEINE, CARISOPRODOL,PHENACETIN) [Concomitant]
  4. PROPRANOLOL [Concomitant]
  5. MIRTZAPINE (MIRTAZAPINE) [Concomitant]
  6. LORATADINE [Concomitant]
  7. MECLOZINE HYDROCHLORIDE (MECLOZINE HYDROCHLORIDE) [Concomitant]

REACTIONS (6)
  - ANTICONVULSANT DRUG LEVEL INCREASED [None]
  - DIZZINESS [None]
  - INCOHERENT [None]
  - INFLUENZA [None]
  - NASOPHARYNGITIS [None]
  - VISUAL DISTURBANCE [None]
